FAERS Safety Report 24877285 (Version 1)
Quarter: 2025Q1

REPORT INFORMATION
  Report Type: Spontaneous
  Country: DE (occurrence: DE)
  Receive Date: 20250123
  Receipt Date: 20250123
  Transmission Date: 20250408
  Serious: Yes (Life-Threatening, Hospitalization, Other)
  Sender: ALKEM
  Company Number: DE-ALKEM LABORATORIES LIMITED-DE-ALKEM-2024-26927

PATIENT
  Age: 27 Year
  Sex: Female
  Weight: 164 kg

DRUGS (3)
  1. AMLODIPINE BESYLATE [Suspect]
     Active Substance: AMLODIPINE BESYLATE
     Indication: Product used for unknown indication
     Route: 065
  2. LOSARTAN [Suspect]
     Active Substance: LOSARTAN
     Indication: Product used for unknown indication
     Route: 065
  3. HYDROCHLOROTHIAZIDE [Suspect]
     Active Substance: HYDROCHLOROTHIAZIDE
     Indication: Product used for unknown indication
     Route: 065

REACTIONS (8)
  - Suicide attempt [Unknown]
  - Mean arterial pressure decreased [Unknown]
  - Acute kidney injury [Unknown]
  - Overdose [Unknown]
  - Toxicity to various agents [Unknown]
  - Drug level increased [Unknown]
  - Lethargy [Unknown]
  - Swelling face [Unknown]
